FAERS Safety Report 9782238 (Version 1)
Quarter: 2013Q4

REPORT INFORMATION
  Report Type: Spontaneous
  Country: US (occurrence: US)
  Receive Date: 20131226
  Receipt Date: 20131226
  Transmission Date: 20140711
  Serious: No
  Sender: FDA-Public Use
  Company Number: US-009507513-1312USA004922

PATIENT
  Age: 78 Year
  Sex: Male

DRUGS (10)
  1. CARBIDOPA (+) LEVODOPA [Suspect]
     Indication: PARKINSON^S DISEASE
     Dosage: DAILY DOSE OF 450 MG
     Route: 048
  2. CARBIDOPA (+) LEVODOPA [Suspect]
     Dosage: DAILY DOSE OF 600 MG
     Route: 048
  3. CARBIDOPA (+) LEVODOPA [Suspect]
     Dosage: 800 MG DAILY
     Route: 048
  4. CARBIDOPA (+) LEVODOPA [Suspect]
     Dosage: 750 MG DAILY
     Route: 048
  5. CARBIDOPA (+) LEVODOPA [Suspect]
     Dosage: 650 MG DAILY
     Route: 048
  6. CARBIDOPA (+) LEVODOPA [Suspect]
     Indication: PARKINSON^S DISEASE
     Dosage: 200 MG, HS
     Route: 048
  7. CLONAZEPAM [Concomitant]
     Indication: INSOMNIA
     Dosage: 0.5 MG, HS
  8. PRAMIPEXOLE [Concomitant]
     Dosage: 0.25 MG, TID
  9. PROVIGIL [Concomitant]
     Indication: HYPERSOMNIA
     Dosage: 200 MG, QD
  10. PROVIGIL [Concomitant]
     Dosage: 200 MG, BID

REACTIONS (2)
  - Dyskinesia [Recovered/Resolved]
  - Somnolence [Recovered/Resolved]
